FAERS Safety Report 12164708 (Version 3)
Quarter: 2016Q3

REPORT INFORMATION
  Report Type: Spontaneous
  Country: US (occurrence: US)
  Receive Date: 20160309
  Receipt Date: 20160914
  Transmission Date: 20161109
  Serious: No
  Sender: FDA-Public Use
  Company Number: US-ROCHE-1708320

PATIENT
  Age: 61 Year
  Sex: Female
  Weight: 78.5 kg

DRUGS (11)
  1. ATENOLOL. [Concomitant]
     Active Substance: ATENOLOL
  2. MINOCYCLINE [Concomitant]
     Active Substance: MINOCYCLINE\MINOCYCLINE HYDROCHLORIDE
     Route: 065
     Dates: start: 20160218
  3. IBUPROFEN. [Concomitant]
     Active Substance: IBUPROFEN
  4. GABAPENTIN. [Concomitant]
     Active Substance: GABAPENTIN
  5. VITAMIN D3 [Concomitant]
     Active Substance: CHOLECALCIFEROL
  6. COTELLIC [Suspect]
     Active Substance: COBIMETINIB
     Indication: OVARIAN CANCER
     Dosage: 3 TAB DAILY FOR 21 DAYS OUT 28 DAYS
     Route: 048
     Dates: start: 201601
  7. VITAMIN K2 [Concomitant]
     Active Substance: MENAQUINONE 6
  8. TYLENOL [Concomitant]
     Active Substance: ACETAMINOPHEN
  9. COTELLIC [Suspect]
     Active Substance: COBIMETINIB
     Dosage: TAKE 2 TABS QD FOR 21DAYS OUT OF 28DAYS CYCLE
     Route: 048
  10. DOXYCYCLINE HYCLATE. [Concomitant]
     Active Substance: DOXYCYCLINE HYCLATE
  11. LISINOPRIL. [Concomitant]
     Active Substance: LISINOPRIL

REACTIONS (7)
  - Diarrhoea [Unknown]
  - Dermatitis acneiform [Recovering/Resolving]
  - Onychoclasis [Unknown]
  - Acne [Unknown]
  - Blood test abnormal [Unknown]
  - Nail growth abnormal [Unknown]
  - Rash [Unknown]

NARRATIVE: CASE EVENT DATE: 201601
